FAERS Safety Report 6187394-4 (Version None)
Quarter: 2009Q2

REPORT INFORMATION
  Report Type: 
  Country: None (occurrence: None)
  Receive Date: 20090512
  Receipt Date: 20090504
  Transmission Date: 20091009
  Serious: Yes (Hospitalization)
  Sender: FDA-Public Use
  Company Number: B0573442A

PATIENT
  Sex: Female

DRUGS (1)
  1. ARIXTRA [Suspect]
     Indication: THROMBOSIS PROPHYLAXIS
     Dosage: 5MG PER DAY
     Route: 058
     Dates: start: 20090412, end: 20090417

REACTIONS (5)
  - ARTHRALGIA [None]
  - ASTHENIA [None]
  - MALAISE [None]
  - PYREXIA [None]
  - RESPIRATORY FAILURE [None]
